FAERS Safety Report 13868689 (Version 1)
Quarter: 2017Q3

REPORT INFORMATION
  Report Type: Spontaneous
  Country: US (occurrence: US)
  Receive Date: 20170815
  Receipt Date: 20170815
  Transmission Date: 20171127
  Serious: No
  Sender: FDA-Public Use
  Company Number: US-PFIZER INC-2017345283

PATIENT
  Sex: Male

DRUGS (2)
  1. LORAZEPAM. [Suspect]
     Active Substance: LORAZEPAM
     Dosage: 1 MG, UNK
  2. METHOTREXATE SODIUM. [Suspect]
     Active Substance: METHOTREXATE SODIUM
     Dosage: 20 MG, WEEKLY

REACTIONS (8)
  - Constipation [Unknown]
  - Arthralgia [Unknown]
  - Muscular weakness [Unknown]
  - Joint swelling [Unknown]
  - Erythema [Unknown]
  - Joint range of motion decreased [Unknown]
  - Joint stiffness [Unknown]
  - Myalgia [Unknown]
